FAERS Safety Report 21849095 (Version 1)
Quarter: 2023Q1

REPORT INFORMATION
  Report Type: Spontaneous
  Country: US (occurrence: None)
  Receive Date: 20230111
  Receipt Date: 20230111
  Transmission Date: 20230418
  Serious: No
  Sender: FDA-Public Use
  Company Number: None

PATIENT
  Age: 65 Year
  Sex: Male

DRUGS (1)
  1. BETHANECHOL CHLORIDE [Suspect]
     Active Substance: BETHANECHOL CHLORIDE
     Indication: Urinary retention
     Dosage: FREQUENCY : 3 TIMES A DAY;?
     Route: 048
     Dates: start: 20200606, end: 20210923

REACTIONS (5)
  - Dizziness [None]
  - Sinus bradycardia [None]
  - Arrhythmia [None]
  - Nodal rhythm [None]
  - Hypotension [None]

NARRATIVE: CASE EVENT DATE: 20210923
